FAERS Safety Report 5210155-7 (Version None)
Quarter: 2006Q4

REPORT INFORMATION
  Report Type: 
  Country: None (occurrence: None)
  Receive Date: 20061103
  Receipt Date: 20060717
  Transmission Date: 20070319
  Serious: No
  Sender: FDA-Public Use
  Company Number: FACT0600309

PATIENT
  Age: 52 Year
  Sex: Female
  Weight: 56.7 kg

DRUGS (1)
  1. FACTIVE [Suspect]
     Indication: RESPIRATORY TRACT INFECTION BACTERIAL
     Dosage: 320 MF, QD, ORAL
     Route: 048
     Dates: start: 20060627, end: 20060630

REACTIONS (2)
  - ANGIONEUROTIC OEDEMA [None]
  - URTICARIA GENERALISED [None]
